FAERS Safety Report 7561162-0 (Version None)
Quarter: 2011Q2

REPORT INFORMATION
  Report Type: 
  Country: None (occurrence: None)
  Receive Date: 20110621
  Receipt Date: 20101028
  Transmission Date: 20111010
  Serious: No
  Sender: FDA-Public Use
  Company Number: US-ASTRAZENECA-2010SE51592

PATIENT
  Age: 75 Year
  Sex: Female

DRUGS (2)
  1. PULMICORT FLEXHALER [Suspect]
     Indication: ASTHMA
     Dosage: TWO PUFFS TWICE DAILY
     Route: 055
     Dates: end: 20101027
  2. PULMICORT FLEXHALER [Suspect]
     Dosage: ONE PUFF TWICE DAILY
     Route: 055
     Dates: start: 20101027

REACTIONS (1)
  - THROAT TIGHTNESS [None]
